FAERS Safety Report 20996551 (Version 1)
Quarter: 2022Q2

REPORT INFORMATION
  Report Type: Report from Study
  Country: IN (occurrence: IN)
  Receive Date: 20220623
  Receipt Date: 20220623
  Transmission Date: 20220721
  Serious: Yes (Other)
  Sender: FDA-Public Use
  Company Number: IN-TAKEDA-2022TUS039919

PATIENT
  Age: 60 Year
  Sex: Male

DRUGS (3)
  1. ANTI-INHIBITOR COAGULANT COMPLEX [Suspect]
     Active Substance: ANTI-INHIBITOR COAGULANT COMPLEX
     Indication: Haemophilia
     Dosage: UNK
     Route: 065
     Dates: start: 202204
  2. ANTI-INHIBITOR COAGULANT COMPLEX [Suspect]
     Active Substance: ANTI-INHIBITOR COAGULANT COMPLEX
     Indication: Factor VIII deficiency
     Dosage: 2500 INTERNATIONAL UNIT
     Route: 042
     Dates: start: 20220530
  3. NOVOSEVEN [Concomitant]
     Active Substance: COAGULATION FACTOR VIIA RECOMBINANT HUMAN
     Dosage: UNK

REACTIONS (1)
  - Anti factor VIII antibody positive [Not Recovered/Not Resolved]

NARRATIVE: CASE EVENT DATE: 20220613
